FAERS Safety Report 10435591 (Version 2)
Quarter: 2014Q3

REPORT INFORMATION
  Report Type: Spontaneous
  Country: GB (occurrence: GB)
  Receive Date: 20140908
  Receipt Date: 20140908
  Transmission Date: 20150326
  Serious: Yes (Disabling, Other)
  Sender: FDA-Public Use
  Company Number: GB-BRISTOL-MYERS SQUIBB COMPANY-20582425

PATIENT
  Age: 78 Year
  Sex: Male
  Weight: 87 kg

DRUGS (7)
  1. LEVOTHYROXINE [Concomitant]
     Active Substance: LEVOTHYROXINE
  2. GLIMEPIRIDE. [Concomitant]
     Active Substance: GLIMEPIRIDE
  3. GLUCOPHAGE [Concomitant]
     Active Substance: METFORMIN HYDROCHLORIDE
  4. ATORVASTATIN [Concomitant]
     Active Substance: ATORVASTATIN
  5. FORXIGA [Suspect]
     Active Substance: DAPAGLIFLOZIN
     Dosage: 5MG
     Route: 048
     Dates: start: 20140509, end: 20140514
  6. THIAMINE [Concomitant]
     Active Substance: THIAMINE
  7. AMLODIPINE [Concomitant]
     Active Substance: AMLODIPINE BESYLATE

REACTIONS (4)
  - Dry mouth [Recovered/Resolved]
  - Urinary tract infection [Unknown]
  - Mouth ulceration [Recovered/Resolved]
  - Oral infection [Recovered/Resolved]
